FAERS Safety Report 5241243-7 (Version None)
Quarter: 2007Q1

REPORT INFORMATION
  Report Type: 
  Country: None (occurrence: None)
  Receive Date: 20070212
  Receipt Date: 20070212
  Transmission Date: 20070707
  Serious: Yes (Other)
  Sender: FDA-Public Use
  Company Number: None

PATIENT
  Age: 58 Year
  Sex: Male

DRUGS (1)
  1. AMBIEN [Suspect]
     Indication: INSOMNIA
     Dosage: 10 HS PO; 5 NIGHTS
     Route: 048
     Dates: start: 20070202, end: 20070206

REACTIONS (3)
  - CONFUSIONAL STATE [None]
  - DEPRESSION [None]
  - IMPAIRED WORK ABILITY [None]
